FAERS Safety Report 23440198 (Version 1)
Quarter: 2024Q1

REPORT INFORMATION
  Report Type: Spontaneous
  Country: FR (occurrence: FR)
  Receive Date: 20240124
  Receipt Date: 20240124
  Transmission Date: 20240410
  Serious: Yes (Other)
  Sender: FDA-Public Use
  Company Number: None

PATIENT
  Age: 39 Year
  Sex: Female

DRUGS (1)
  1. KEYTRUDA [Suspect]
     Active Substance: PEMBROLIZUMAB
     Indication: Triple negative breast cancer
     Dosage: 200 MG TOTAL DOSE
     Route: 042
     Dates: start: 20230112

REACTIONS (4)
  - Gastrointestinal disorder [Recovered/Resolved]
  - Hot flush [Recovered/Resolved]
  - Asthenia [Recovered/Resolved]
  - Drug eruption [Recovered/Resolved with Sequelae]

NARRATIVE: CASE EVENT DATE: 20230202
